FAERS Safety Report 8004699-2 (Version None)
Quarter: 2011Q4

REPORT INFORMATION
  Report Type: 
  Country: None (occurrence: None)
  Receive Date: 20111220
  Receipt Date: 20111209
  Transmission Date: 20120403
  Serious: Yes (Life-Threatening)
  Sender: FDA-Public Use
  Company Number: LTI2011A00315

PATIENT
  Sex: Female

DRUGS (5)
  1. DIAMICRON (GLICLAZIDE) [Concomitant]
  2. HYZAAR [Concomitant]
  3. ASPIRIN [Concomitant]
  4. ACTOS [Suspect]
     Indication: DIABETES MELLITUS
     Dosage: 15 MG (15 MG, 1 IN 1 D) ORAL
     Route: 048
     Dates: start: 20040101, end: 20080101
  5. OXAZEPAM [Concomitant]

REACTIONS (1)
  - BLADDER CANCER [None]
